FAERS Safety Report 7971504-X (Version None)
Quarter: 2011Q4

REPORT INFORMATION
  Report Type: 
  Country: None (occurrence: None)
  Receive Date: 20111212
  Receipt Date: 20111128
  Transmission Date: 20120403
  Serious: Yes (Hospitalization)
  Sender: FDA-Public Use
  Company Number: US-ELI_LILLY_AND_COMPANY-US201101000135

PATIENT
  Sex: Female

DRUGS (8)
  1. METHOTREXATE [Concomitant]
  2. FORTEO [Suspect]
     Dosage: 20 UG, QD
  3. FOLIC ACID [Concomitant]
  4. METFORMIN HCL [Concomitant]
  5. PLAQUENIL [Concomitant]
  6. JANUVIA [Concomitant]
  7. FORTEO [Suspect]
     Indication: OSTEOPOROSIS
     Dosage: 20 UG, DAILY (1/D)
     Dates: start: 20101217
  8. HYDROCODONE [Concomitant]

REACTIONS (3)
  - INTERVERTEBRAL DISC OPERATION [None]
  - MIDDLE INSOMNIA [None]
  - DRUG DOSE OMISSION [None]
